FAERS Safety Report 25844341 (Version 1)
Quarter: 2025Q3

REPORT INFORMATION
  Report Type: Spontaneous
  Country: EU (occurrence: EU)
  Receive Date: 20250925
  Receipt Date: 20250925
  Transmission Date: 20251021
  Serious: Yes (Hospitalization)
  Sender: UNICHEM
  Company Number: EU-UNICHEM LABORATORIES LIMITED-UNI-2025-ES-003288

PATIENT

DRUGS (6)
  1. DIVALPROEX SODIUM [Interacting]
     Active Substance: DIVALPROEX SODIUM
     Indication: Bipolar I disorder
     Route: 048
  2. DIVALPROEX SODIUM [Interacting]
     Active Substance: DIVALPROEX SODIUM
     Route: 048
  3. DIVALPROEX SODIUM [Interacting]
     Active Substance: DIVALPROEX SODIUM
     Route: 048
  4. DIVALPROEX SODIUM [Interacting]
     Active Substance: DIVALPROEX SODIUM
     Route: 048
  5. QUETIAPINE [Concomitant]
     Active Substance: QUETIAPINE
     Indication: Bipolar I disorder
     Route: 065
  6. ARIPIPRAZOLE [Concomitant]
     Active Substance: ARIPIPRAZOLE
     Indication: Bipolar I disorder
     Route: 065

REACTIONS (2)
  - Drug level decreased [Recovering/Resolving]
  - Drug interaction [Unknown]
